FAERS Safety Report 18493594 (Version 19)
Quarter: 2021Q2

REPORT INFORMATION
  Report Type: Report from Study
  Country: BR (occurrence: BR)
  Receive Date: 20201112
  Receipt Date: 20210421
  Transmission Date: 20210717
  Serious: Yes (Hospitalization)
  Sender: FDA-Public Use
  Company Number: BR-ROCHE-2708341

PATIENT
  Age: 29 Year
  Sex: Female
  Weight: 93 kg

DRUGS (16)
  1. RO7122290 (FAP?4?1BBL MAB) [Suspect]
     Active Substance: INVESTIGATIONAL PRODUCT
     Indication: METASTATIC NEOPLASM
     Dosage: START DATE OF MOST RECENT DOSE OF STUDY DRUG PRIOR TO AE AND SAE 26/OCT/2020 01:12 PM ?END DATE OF M
     Route: 041
     Dates: start: 20201019
  2. NAB?PACLITAXEL [Suspect]
     Active Substance: PACLITAXEL
     Indication: METASTATIC NEOPLASM
     Dosage: START DATE OF MOST RECENT DOSE OF STUDY DRUG PRIOR TO AE AND SAE 26/OCT/2020 3:13 PM?END DATE OF MOS
     Route: 041
     Dates: start: 20201019
  3. IBUPROFEN. [Concomitant]
     Active Substance: IBUPROFEN
     Indication: HEADACHE
     Dates: start: 20201022, end: 20201023
  4. LOPERAMIDE [Concomitant]
     Active Substance: LOPERAMIDE
     Indication: DIARRHOEA
     Dates: start: 20201105, end: 20201105
  5. IVERMECTIN. [Concomitant]
     Active Substance: IVERMECTIN
     Indication: PROPHYLAXIS
     Dates: start: 20201103, end: 20201103
  6. IBUPROFEN. [Concomitant]
     Active Substance: IBUPROFEN
     Dates: start: 20201026, end: 20201026
  7. CLAVULANIC ACID [Concomitant]
     Active Substance: CLAVULANIC ACID
     Indication: FEBRILE NEUTROPENIA
     Dates: start: 20201102, end: 20201104
  8. ENOXAPARIN [Concomitant]
     Active Substance: ENOXAPARIN
     Dates: start: 20210112, end: 20210115
  9. AMOXICILLIN. [Concomitant]
     Active Substance: AMOXICILLIN
     Indication: FEBRILE NEUTROPENIA
     Dates: start: 20201102, end: 20201104
  10. ENOXAPARIN [Concomitant]
     Active Substance: ENOXAPARIN
     Indication: THROMBOSIS PROPHYLAXIS
     Dates: start: 20201102, end: 20201105
  11. ATEZOLIZUMAB. [Suspect]
     Active Substance: ATEZOLIZUMAB
     Indication: METASTATIC NEOPLASM
     Dosage: START DATE OF MOST RECENT DOSE OF STUDY DRUG PRIOR TO AE AND SAE 19/OCT/2020 9:00 AM?END DATE OF MOS
     Route: 041
     Dates: start: 20201019
  12. BENZYLPENICILLIN BENZATHINE [Concomitant]
     Indication: SECONDARY SYPHILIS
     Dosage: IU
     Dates: start: 20210111, end: 20210111
  13. OMEPRAZOLE. [Concomitant]
     Active Substance: OMEPRAZOLE
     Indication: PROPHYLAXIS
     Dosage: PROPHYLAXIS OF GASTRIC INJURY
     Dates: start: 20201103
  14. DOCETAXEL. [Concomitant]
     Active Substance: DOCETAXEL
     Dates: start: 20210218, end: 20210218
  15. CARBOPLATIN. [Concomitant]
     Active Substance: CARBOPLATIN
     Dates: start: 20210218, end: 20210218
  16. CIPROFLOXACIN. [Concomitant]
     Active Substance: CIPROFLOXACIN
     Indication: FEBRILE NEUTROPENIA
     Dates: start: 20201102, end: 20201105

REACTIONS (4)
  - Mastitis [Recovered/Resolved]
  - Tumour inflammation [Recovered/Resolved]
  - Hepatitis [Recovered/Resolved]
  - Pleural effusion [Recovered/Resolved]

NARRATIVE: CASE EVENT DATE: 20201102
